FAERS Safety Report 5140872-9 (Version None)
Quarter: 2006Q4

REPORT INFORMATION
  Report Type: 
  Country: None (occurrence: None)
  Receive Date: 20061026
  Receipt Date: 20061016
  Transmission Date: 20070319
  Serious: Yes (Hospitalization, Other)
  Sender: FDA-Public Use
  Company Number: 2006126431

PATIENT
  Age: 28 Year
  Sex: Female

DRUGS (2)
  1. ATORVASTATIN CALCIUM [Suspect]
     Indication: BLOOD CHOLESTEROL INCREASED
     Dosage: 10 MG (10 MG , 1 IN 1 D) ORAL
     Route: 048
     Dates: start: 20020101
  2. METFORMIN HCL [Suspect]
     Dosage: ORAL
     Route: 048
     Dates: start: 20030101

REACTIONS (13)
  - CATHETER RELATED INFECTION [None]
  - COLON CANCER [None]
  - DIABETES MELLITUS [None]
  - DRUG EFFECT DECREASED [None]
  - ECONOMIC PROBLEM [None]
  - HERNIA [None]
  - HYPERGLYCAEMIA [None]
  - METASTASES TO FALLOPIAN TUBE [None]
  - METASTASES TO OVARY [None]
  - METASTASES TO UTERUS [None]
  - NEUROPATHY PERIPHERAL [None]
  - PHARMACEUTICAL PRODUCT COMPLAINT [None]
  - TREATMENT NONCOMPLIANCE [None]
